FAERS Safety Report 12954015 (Version 2)
Quarter: 2016Q4

REPORT INFORMATION
  Report Type: Spontaneous
  Country: DK (occurrence: DK)
  Receive Date: 20161118
  Receipt Date: 20161206
  Transmission Date: 20170207
  Serious: Yes (Death, Hospitalization, Other)
  Sender: FDA-Public Use
  Company Number: DK-AUROBINDO-AUR-APL-2016-14125

PATIENT
  Age: 54 Year
  Sex: Male

DRUGS (2)
  1. SERTRALINE [Suspect]
     Active Substance: SERTRALINE HYDROCHLORIDE
     Indication: DEPRESSION
     Dosage: 5000 MG, UNK
     Route: 065
  2. VENLAFAXINE [Suspect]
     Active Substance: VENLAFAXINE HYDROCHLORIDE
     Indication: DEPRESSION
     Dosage: 1500 MG, UNK
     Route: 065

REACTIONS (14)
  - Serotonin syndrome [Fatal]
  - Flushing [Fatal]
  - Tachycardia [Fatal]
  - Pulseless electrical activity [Fatal]
  - Completed suicide [Fatal]
  - Tremor [Fatal]
  - Bradycardia [Fatal]
  - Intentional overdose [Fatal]
  - Unresponsive to stimuli [Fatal]
  - Cardiac arrest [Fatal]
  - Hyperhidrosis [Fatal]
  - Vomiting [Fatal]
  - Muscle rigidity [Fatal]
  - Muscle spasms [Fatal]
